FAERS Safety Report 19307901 (Version 2)
Quarter: 2021Q3

REPORT INFORMATION
  Report Type: Report from Study
  Country: None (occurrence: DE)
  Receive Date: 20210526
  Receipt Date: 20210702
  Transmission Date: 20211014
  Serious: Yes (Hospitalization)
  Sender: FDA-Public Use
  Company Number: DE-ABBVIE-21K-062-3920969-00

PATIENT
  Age: 26 Year
  Sex: Female
  Weight: 58 kg

DRUGS (3)
  1. HUMIRA [Suspect]
     Active Substance: ADALIMUMAB
     Route: 058
     Dates: start: 2021
  2. AZATHIOPRIN [Concomitant]
     Active Substance: AZATHIOPRINE
     Indication: PRODUCT USED FOR UNKNOWN INDICATION
     Dates: end: 201809
  3. HUMIRA [Suspect]
     Active Substance: ADALIMUMAB
     Indication: CROHN^S DISEASE
     Route: 058
     Dates: start: 20180924, end: 202102

REACTIONS (1)
  - Ileectomy [Recovered/Resolved]

NARRATIVE: CASE EVENT DATE: 20210301
